FAERS Safety Report 17956938 (Version 1)
Quarter: 2020Q2

REPORT INFORMATION
  Report Type: Spontaneous
  Country: GB (occurrence: GB)
  Receive Date: 20200629
  Receipt Date: 20200629
  Transmission Date: 20200714
  Serious: Yes (Other)
  Sender: FDA-Public Use
  Company Number: GB-AUROBINDO-AUR-APL-2020-030821

PATIENT
  Age: 41 Year
  Sex: Female
  Weight: 97 kg

DRUGS (3)
  1. METRONIDAZOLE TABLET [Suspect]
     Active Substance: METRONIDAZOLE
     Indication: PRODUCT USED FOR UNKNOWN INDICATION
     Dosage: 400 MILLIGRAM, 3 TIMES A DAY (FOR SEVEN DAYS)
     Route: 002
     Dates: start: 20191202, end: 20191202
  2. DESOGESTREL [Concomitant]
     Active Substance: DESOGESTREL
     Indication: PRODUCT USED FOR UNKNOWN INDICATION
     Dosage: 1 DOSAGE FORM, ONCE A DAY
     Route: 065
     Dates: start: 20190917
  3. METRONIDAZOLE TABLET [Suspect]
     Active Substance: METRONIDAZOLE
     Dosage: 400 MILLIGRAM, 3 TIMES A DAY (FOR SEVEN DAYS )
     Route: 065
     Dates: start: 20200529

REACTIONS (2)
  - Dyspnoea [Recovered/Resolved]
  - Urticaria [Recovering/Resolving]
